FAERS Safety Report 5586324-3 (Version None)
Quarter: 2008Q1

REPORT INFORMATION
  Report Type: 
  Country: None (occurrence: None)
  Receive Date: 20080110
  Receipt Date: 20080107
  Transmission Date: 20080703
  Serious: Yes (Life-Threatening, Other)
  Sender: FDA-Public Use
  Company Number: IT-BAYER-200810377GPV

PATIENT
  Age: 63 Year
  Sex: Male

DRUGS (3)
  1. ULTRAVIST 370 [Suspect]
     Indication: COMPUTERISED TOMOGRAM
     Dosage: AS USED: 120 ML
     Route: 042
     Dates: start: 20080103, end: 20080103
  2. SEREUPIN ! (PAROXETINA) [Concomitant]
     Route: 048
  3. ALPRAZOLAM [Concomitant]
     Route: 048

REACTIONS (3)
  - LIP OEDEMA [None]
  - RASH [None]
  - TONGUE OEDEMA [None]
